FAERS Safety Report 15892263 (Version 1)
Quarter: 2019Q1

REPORT INFORMATION
  Report Type: Spontaneous
  Country: DE (occurrence: DE)
  Receive Date: 20190130
  Receipt Date: 20190130
  Transmission Date: 20190417
  Serious: Yes (Hospitalization)
  Sender: FDA-Public Use
  Company Number: DE-EXELIXIS-CABO-18013540

PATIENT
  Age: 75 Year
  Sex: Female

DRUGS (11)
  1. L-THYROXINE [Concomitant]
     Active Substance: LEVOTHYROXINE
  2. LEVETIRACETAM. [Concomitant]
     Active Substance: LEVETIRACETAM
  3. HUMALOG [Concomitant]
     Active Substance: INSULIN LISPRO
  4. CABOMETYX [Suspect]
     Active Substance: CABOZANTINIB S-MALATE
     Dosage: 40 MG, QD
     Route: 048
     Dates: start: 20180708
  5. ALLOPURINOL. [Concomitant]
     Active Substance: ALLOPURINOL
  6. TOREM [Concomitant]
     Active Substance: TORSEMIDE
  7. CABOMETYX [Suspect]
     Active Substance: CABOZANTINIB S-MALATE
     Indication: METASTATIC RENAL CELL CARCINOMA
     Dosage: 60 MG, QD
     Route: 048
     Dates: start: 20180309, end: 20180402
  8. HCT [Concomitant]
     Active Substance: HYDROCHLOROTHIAZIDE
  9. TOUJEO [Concomitant]
     Active Substance: INSULIN GLARGINE
  10. PANTOZOL [Concomitant]
     Active Substance: PANTOPRAZOLE SODIUM
  11. ENALAPRIL [Concomitant]
     Active Substance: ENALAPRIL

REACTIONS (1)
  - Stomatitis [Recovered/Resolved]

NARRATIVE: CASE EVENT DATE: 20180322
